FAERS Safety Report 8310376 (Version 2)
Quarter: 2018Q3

REPORT INFORMATION
  Report Type: Spontaneous
  Country: FR (occurrence: FR)
  Receive Date: 20111223
  Receipt Date: 20180910
  Transmission Date: 20181010
  Serious: Yes (Death, Hospitalization, Other)
  Sender: FDA-Public Use
  Company Number: FR-PFIZER INC-2011308228

PATIENT
  Age: 61 Year
  Sex: Male
  Weight: 92 kg

DRUGS (4)
  1. DUROGESIC [Concomitant]
     Active Substance: FENTANYL
     Dosage: 1 DF, EVERY 72HOURS
     Route: 062
  2. EFFEXOR [Concomitant]
     Active Substance: VENLAFAXINE HYDROCHLORIDE
     Indication: DEPRESSION
     Dosage: 75 MG, 1X/DAY
     Route: 048
  3. ACTISKENAN [Concomitant]
     Active Substance: MORPHINE SULFATE
     Indication: PAIN
     Dosage: 30 MG, AS NEEDED (MAXIMUM DOSAGE OF 6 PER DAY)
  4. SUTENT [Suspect]
     Active Substance: SUNITINIB MALATE
     Indication: RENAL CANCER
     Dosage: 50 MG, DAILY
     Route: 048
     Dates: start: 20110610, end: 20110905

REACTIONS (8)
  - Acute kidney injury [Fatal]
  - Hepatitis [Fatal]
  - General physical health deterioration [Unknown]
  - Urinary retention [Unknown]
  - Anuria [Unknown]
  - Constipation [Unknown]
  - Cholestasis [Fatal]
  - Pain [Unknown]

NARRATIVE: CASE EVENT DATE: 20110918
